FAERS Safety Report 5602720-X (Version None)
Quarter: 2008Q1

REPORT INFORMATION
  Report Type: 
  Country: None (occurrence: None)
  Receive Date: 20080111
  Receipt Date: 20070108
  Transmission Date: 20080703
  Serious: Yes (Other)
  Sender: FDA-Public Use
  Company Number: HQWYE829904AUG04

PATIENT
  Age: 49 Year
  Sex: Female
  Weight: 63.56 kg

DRUGS (4)
  1. PREMPRO [Suspect]
     Indication: HORMONE REPLACEMENT THERAPY
     Dosage: ORAL
     Route: 048
     Dates: start: 19970101, end: 20010101
  2. CYCRIN [Suspect]
     Dates: start: 19960101, end: 19980101
  3. ESTRACE [Suspect]
     Dates: start: 19960101, end: 19970101
  4. PREMARIN [Suspect]
     Dates: start: 19970101, end: 19980101

REACTIONS (1)
  - BREAST CANCER [None]
